FAERS Safety Report 8333030-8 (Version None)
Quarter: 2012Q2

REPORT INFORMATION
  Report Type: 
  Country: None (occurrence: None)
  Receive Date: 20120503
  Receipt Date: 20120424
  Transmission Date: 20120825
  Serious: Yes (Other)
  Sender: FDA-Public Use
  Company Number: PHHY2012BR027548

PATIENT
  Sex: Male
  Weight: 44 kg

DRUGS (1)
  1. ONBREZ [Suspect]
     Indication: LUNG DISORDER
     Dosage: 1 DF, QD
     Dates: start: 20111201, end: 20120201

REACTIONS (1)
  - ARRHYTHMIA [None]
